FAERS Safety Report 7915519-6 (Version None)
Quarter: 2011Q4

REPORT INFORMATION
  Report Type: 
  Country: None (occurrence: None)
  Receive Date: 20111115
  Receipt Date: 20111101
  Transmission Date: 20120403
  Serious: Yes (Death, Other)
  Sender: FDA-Public Use
  Company Number: IE-BRISTOL-MYERS SQUIBB COMPANY-16210130

PATIENT
  Age: 6 Decade
  Sex: Female

DRUGS (1)
  1. ABATACEPT [Suspect]
     Dosage: FOR ONE YEAR, BUT NOT CONTINUOUSLY

REACTIONS (2)
  - INFECTION [None]
  - DEATH [None]
